FAERS Safety Report 11691500 (Version 1)
Quarter: 2015Q4

REPORT INFORMATION
  Report Type: Spontaneous
  Country: US (occurrence: US)
  Receive Date: 20151102
  Receipt Date: 20151102
  Transmission Date: 20160304
  Serious: Yes (Other)
  Sender: FDA-Public Use
  Company Number: ALCN2015US006709

PATIENT
  Age: 79 Year
  Sex: Female

DRUGS (4)
  1. DIFLUPREDNATE [Suspect]
     Active Substance: DIFLUPREDNATE
     Dosage: 1 GTT, QID
     Route: 047
  2. BESIFLOXACIN [Suspect]
     Active Substance: BESIFLOXACIN
     Indication: POSTOPERATIVE CARE
     Dosage: 1 GTT, QID
     Route: 047
  3. NEPAFENAC [Suspect]
     Active Substance: NEPAFENAC
     Indication: POSTOPERATIVE CARE
  4. NEPAFENAC [Suspect]
     Active Substance: NEPAFENAC
     Indication: INCORRECT DRUG ADMINISTRATION RATE
     Dosage: 1 GTT, QID
     Route: 047

REACTIONS (8)
  - Keratitis [Recovered/Resolved]
  - Hypopyon [Recovered/Resolved]
  - Corneal infiltrates [Recovered/Resolved]
  - Blepharitis [Recovered/Resolved]
  - Conjunctival hyperaemia [Recovered/Resolved]
  - Corneal oedema [Recovered/Resolved]
  - Intraocular pressure increased [Recovered/Resolved]
  - Visual acuity reduced [Recovered/Resolved]
